FAERS Safety Report 4911751-4 (Version None)
Quarter: 2006Q1

REPORT INFORMATION
  Report Type: 
  Country: None (occurrence: None)
  Receive Date: 20060215
  Receipt Date: 20060213
  Transmission Date: 20060701
  Serious: Yes (Disabling, Other)
  Sender: FDA-Public Use
  Company Number: US-JNJFOC-20051202489

PATIENT
  Sex: Female

DRUGS (3)
  1. REMICADE [Suspect]
     Dosage: 2 INFUSION AT 3 MG/KG, 3 INFUSIONS AT 4 MG/KG AND 12 INFUSION AT 6 MG/KG.
     Route: 042
  2. REMICADE [Suspect]
     Dosage: FOR 3 INFUSIONS
     Route: 042
  3. REMICADE [Suspect]
     Route: 042

REACTIONS (1)
  - MONONEUROPATHY MULTIPLEX [None]
